FAERS Safety Report 20653272 (Version 1)
Quarter: 2022Q1

REPORT INFORMATION
  Report Type: Spontaneous
  Country: CN (occurrence: CN)
  Receive Date: 20220330
  Receipt Date: 20220330
  Transmission Date: 20220424
  Serious: Yes (Other)
  Sender: FDA-Public Use
  Company Number: CN-BAXTER-2022BAX006407

PATIENT
  Age: 11 Year
  Sex: Female
  Weight: 57 kg

DRUGS (3)
  1. CYCLOPHOSPHAMIDE [Suspect]
     Active Substance: CYCLOPHOSPHAMIDE
     Indication: Acute lymphocytic leukaemia
     Dosage: CAML REGIMEN (CYCLOPHOSPHAMIDE, CYTARABINE AND MERCAPTOPURINE)
     Route: 041
     Dates: start: 20220205, end: 20220205
  2. CYTARABINE [Suspect]
     Active Substance: CYTARABINE
     Indication: Acute lymphocytic leukaemia
     Dosage: CAML REGIMEN (CYCLOPHOSPHAMIDE, CYTARABINE AND MERCAPTOPURINE)
     Route: 065
     Dates: start: 20220205
  3. MERCAPTOPURINE [Suspect]
     Active Substance: MERCAPTOPURINE
     Indication: Acute lymphocytic leukaemia
     Dosage: CAML REGIMEN (CYCLOPHOSPHAMIDE, CYTARABINE AND MERCAPTOPURINE)
     Route: 065
     Dates: start: 20220205

REACTIONS (9)
  - Tricuspid valve incompetence [Unknown]
  - Cardiomyopathy [Unknown]
  - Myocardial infarction [Recovered/Resolved]
  - Ventricular tachycardia [Unknown]
  - Atrial tachycardia [Unknown]
  - Electrocardiogram T wave abnormal [Recovering/Resolving]
  - Sinus tachycardia [Recovering/Resolving]
  - Disease recurrence [Recovered/Resolved]
  - Palpitations [Recovered/Resolved]

NARRATIVE: CASE EVENT DATE: 20220201
